FAERS Safety Report 6169683-2 (Version None)
Quarter: 2009Q2

REPORT INFORMATION
  Report Type: 
  Country: None (occurrence: None)
  Receive Date: 20090428
  Receipt Date: 20090417
  Transmission Date: 20091009
  Serious: Yes (Other)
  Sender: FDA-Public Use
  Company Number: -BIOGENIDEC-2009BI012084

PATIENT
  Age: 33 Year
  Sex: Female

DRUGS (1)
  1. TYSABRI [Suspect]
     Indication: RELAPSING-REMITTING MULTIPLE SCLEROSIS
     Route: 042
     Dates: start: 20080701, end: 20090301

REACTIONS (5)
  - CHILLS [None]
  - COUGH [None]
  - MULTIPLE SCLEROSIS RELAPSE [None]
  - PULMONARY FIBROSIS [None]
  - PYREXIA [None]
